FAERS Safety Report 6911831-8 (Version None)
Quarter: 2010Q3

REPORT INFORMATION
  Report Type: 
  Country: None (occurrence: None)
  Receive Date: 20100806
  Receipt Date: 20070711
  Transmission Date: 20110219
  Serious: No
  Sender: FDA-Public Use
  Company Number: US-PFIZER INC-2007057058

PATIENT
  Sex: Female
  Weight: 58.97 kg

DRUGS (4)
  1. DETROL LA [Suspect]
     Indication: HYPERTONIC BLADDER
     Dates: start: 20060101, end: 20070708
  2. EVISTA [Concomitant]
  3. VITAMIN TAB [Concomitant]
  4. CALCIUM [Concomitant]

REACTIONS (2)
  - CONSTIPATION [None]
  - DRY MOUTH [None]
